FAERS Safety Report 7741555-9 (Version None)
Quarter: 2011Q3

REPORT INFORMATION
  Report Type: 
  Country: None (occurrence: None)
  Receive Date: 20110909
  Receipt Date: 20110831
  Transmission Date: 20111222
  Serious: Yes (Hospitalization)
  Sender: FDA-Public Use
  Company Number: CH-ASTRAZENECA-2011SE52576

PATIENT
  Age: 87 Year
  Sex: Male

DRUGS (6)
  1. TENORETIC 50 [Suspect]
     Dosage: 50/12.5 MG, ONE TABLET AT NIGHT
     Route: 048
     Dates: end: 20110514
  2. PRADIF [Concomitant]
     Route: 048
  3. CITALOPRAM HYDROBROMIDE [Concomitant]
     Route: 048
  4. BILOL [Concomitant]
     Route: 048
  5. ATORVASTATIN CALCIUM [Concomitant]
     Route: 048
  6. ASPIRIN [Concomitant]
     Route: 048

REACTIONS (2)
  - NIGHTMARE [None]
  - CONFUSIONAL STATE [None]
